FAERS Safety Report 4978202-5 (Version None)
Quarter: 2006Q2

REPORT INFORMATION
  Report Type: 
  Country: None (occurrence: None)
  Receive Date: 20060420
  Receipt Date: 20060412
  Transmission Date: 20061013
  Serious: Yes (Hospitalization)
  Sender: FDA-Public Use
  Company Number: IT-ROCHE-444150

PATIENT
  Age: 78 Year
  Sex: Female

DRUGS (1)
  1. TICLID [Suspect]
     Route: 048
     Dates: start: 20051201, end: 20060224

REACTIONS (4)
  - CELLULITIS [None]
  - CONJUNCTIVITIS [None]
  - DERMATITIS [None]
  - NEUTROPENIA [None]
